FAERS Safety Report 10079325 (Version 1)
Quarter: 2014Q2

REPORT INFORMATION
  Report Type: Report from Study
  Country: US (occurrence: US)
  Receive Date: 20140415
  Receipt Date: 20140415
  Transmission Date: 20141212
  Serious: Yes (Other)
  Sender: FDA-Public Use
  Company Number: PHEH2014US007209

PATIENT
  Sex: Male
  Weight: 98.87 kg

DRUGS (1)
  1. GILENYA [Suspect]
     Indication: MULTIPLE SCLEROSIS
     Dosage: 0.5 MG, QD
     Route: 048
     Dates: start: 20130206

REACTIONS (7)
  - Neuropathy peripheral [Unknown]
  - Balance disorder [Unknown]
  - Muscle spasms [Unknown]
  - Paraesthesia [Unknown]
  - Burning sensation [Unknown]
  - Asthenia [Unknown]
  - Memory impairment [Unknown]
